FAERS Safety Report 6994101-1 (Version None)
Quarter: 2010Q3

REPORT INFORMATION
  Report Type: 
  Country: None (occurrence: None)
  Receive Date: 20100917
  Receipt Date: 20070523
  Transmission Date: 20110219
  Serious: Yes (Other)
  Sender: FDA-Public Use
  Company Number: US-ASTRAZENECA-2006UW25945

PATIENT
  Age: 15912 Day
  Sex: Female
  Weight: 93.4 kg

DRUGS (12)
  1. SEROQUEL [Suspect]
     Indication: DEPRESSION
     Route: 048
     Dates: end: 20050101
  2. SEROQUEL [Suspect]
     Dosage: 150 MG - 200 MG
     Route: 048
     Dates: start: 20020730
  3. ABILIFY [Concomitant]
  4. RISPERDAL [Concomitant]
  5. ZYPREXA [Concomitant]
  6. ZOLOFT [Concomitant]
     Dosage: 100-200 MG
     Dates: start: 20020730
  7. REMERON [Concomitant]
     Dates: start: 20020730
  8. ELAVIL [Concomitant]
     Indication: INSOMNIA
     Dosage: 25-100 MG
     Dates: start: 20020730
  9. ELAVIL [Concomitant]
     Indication: SLEEP DISORDER
     Dosage: 25-100 MG
     Dates: start: 20020730
  10. GLUCOVANCE [Concomitant]
     Dosage: 10/1000-15/1500 MG
     Dates: start: 20030715
  11. SINGULAIR [Concomitant]
     Dates: start: 20020317
  12. PREVACID [Concomitant]
     Dates: start: 20020317

REACTIONS (3)
  - DIABETES MELLITUS [None]
  - DIABETES MELLITUS INADEQUATE CONTROL [None]
  - TYPE 2 DIABETES MELLITUS [None]
